FAERS Safety Report 19095227 (Version 1)
Quarter: 2021Q2

REPORT INFORMATION
  Report Type: Spontaneous
  Country: CN (occurrence: CN)
  Receive Date: 20210405
  Receipt Date: 20210405
  Transmission Date: 20210717
  Serious: Yes (Other)
  Sender: FDA-Public Use
  Company Number: CN-JIANGSU HENGRUI MEDICINE CO., LTD.-2108916

PATIENT
  Age: 28 Year
  Sex: Male

DRUGS (10)
  1. CISATRACURIUM BESYLATE INJECTION USP, 10 MG/5 ML (2 MG/ML) AND 200 MG/ [Suspect]
     Active Substance: CISATRACURIUM BESYLATE
     Indication: INDUCTION OF ANAESTHESIA
  2. DEZOCINE [Suspect]
     Active Substance: DEZOCINE
  3. REMIFENTANIL [Suspect]
     Active Substance: REMIFENTANIL
  4. AMOXICILLIN TRIHYDRATE, CLAVULANATE POTASSIUM [Suspect]
     Active Substance: AMOXICILLIN\CLAVULANATE POTASSIUM
  5. DEXMEDETOMIDINE HYDROCHLORIDE 200 ?G [Suspect]
     Active Substance: DEXMEDETOMIDINE HYDROCHLORIDE
  6. OXYCODONE. [Suspect]
     Active Substance: OXYCODONE HYDROCHLORIDE
  7. EPHEDRINE. [Suspect]
     Active Substance: EPHEDRINE
  8. PALONOSETRON HYDROCHLORIDE 0.25 MG/ 5 ML INFUSION [Suspect]
     Active Substance: PALONOSETRON HYDROCHLORIDE
  9. ESMOLOL [Suspect]
     Active Substance: ESMOLOL HYDROCHLORIDE
  10. FLURBIPROFEN. [Suspect]
     Active Substance: FLURBIPROFEN

REACTIONS (1)
  - Linear IgA disease [Recovered/Resolved]
